FAERS Safety Report 8560765-4 (Version None)
Quarter: 2012Q3

REPORT INFORMATION
  Report Type: 
  Country: None (occurrence: None)
  Receive Date: 20120802
  Receipt Date: 20120730
  Transmission Date: 20120928
  Serious: Yes (Hospitalization)
  Sender: FDA-Public Use
  Company Number: US-GILEAD-2012-0051809

PATIENT
  Sex: Female

DRUGS (1)
  1. LETAIRIS [Suspect]
     Indication: PULMONARY HYPERTENSION
     Dosage: 5 MG, UNK
     Route: 048
     Dates: start: 20080506

REACTIONS (6)
  - JOINT SWELLING [None]
  - HIP ARTHROPLASTY [None]
  - DYSPNOEA [None]
  - DEVICE RELATED INFECTION [None]
  - HIP SURGERY [None]
  - OEDEMA PERIPHERAL [None]
